FAERS Safety Report 16166877 (Version 1)
Quarter: 2019Q2

REPORT INFORMATION
  Report Type: Report from Study
  Country: US (occurrence: US)
  Receive Date: 20190408
  Receipt Date: 20190408
  Transmission Date: 20190711
  Serious: Yes (Disabling, Other)
  Sender: FDA-Public Use
  Company Number: US-EMD SERONO-9080973

PATIENT
  Age: 30 Year
  Sex: Female

DRUGS (2)
  1. REBIF [Suspect]
     Active Substance: INTERFERON BETA-1A
     Route: 058
     Dates: start: 201903, end: 20190325
  2. REBIF [Suspect]
     Active Substance: INTERFERON BETA-1A
     Indication: MULTIPLE SCLEROSIS
     Route: 058
     Dates: start: 20190306

REACTIONS (8)
  - Pyrexia [Unknown]
  - Influenza like illness [Not Recovered/Not Resolved]
  - Eye movement disorder [Unknown]
  - Dizziness [Recovered/Resolved]
  - Vomiting [Unknown]
  - Tremor [Unknown]
  - Deafness [Unknown]
  - Migraine [Unknown]

NARRATIVE: CASE EVENT DATE: 201903
